FAERS Safety Report 6338222-5 (Version None)
Quarter: 2009Q3

REPORT INFORMATION
  Report Type: 
  Country: None (occurrence: None)
  Receive Date: 20090902
  Receipt Date: 20090824
  Transmission Date: 20100115
  Serious: Yes (Hospitalization)
  Sender: FDA-Public Use
  Company Number: JP-SANOFI-SYNTHELABO-A01200908410

PATIENT
  Age: 71 Year
  Sex: Male
  Weight: 70 kg

DRUGS (3)
  1. BLOPRESS [Concomitant]
     Indication: HYPERTENSION
     Dosage: UNK
     Route: 065
     Dates: start: 20081201, end: 20090701
  2. ZYLORIC [Concomitant]
     Indication: HYPERURICAEMIA
     Route: 065
     Dates: start: 20081201, end: 20090701
  3. PLAVIX [Suspect]
     Indication: CEREBRAL INFARCTION
     Route: 048
     Dates: start: 20081201, end: 20090701

REACTIONS (1)
  - BILE DUCT STONE [None]
